FAERS Safety Report 13489798 (Version 2)
Quarter: 2017Q2

REPORT INFORMATION
  Report Type: Report from Study
  Country: US (occurrence: US)
  Receive Date: 20170427
  Receipt Date: 20170606
  Transmission Date: 20170830
  Serious: No
  Sender: FDA-Public Use
  Company Number: PHEH2017US012047

PATIENT
  Sex: Male

DRUGS (1)
  1. ENTRESTO [Suspect]
     Active Substance: SACUBITRIL\VALSARTAN
     Indication: PRODUCT USED FOR UNKNOWN INDICATION
     Dosage: 50 MG, BID
     Route: 065
     Dates: start: 201508

REACTIONS (6)
  - Stress [Unknown]
  - Cough [Unknown]
  - Dyspnoea [Unknown]
  - Weight fluctuation [Unknown]
  - Dizziness [Unknown]
  - Hypotension [Unknown]
